FAERS Safety Report 8846850 (Version 1)
Quarter: 2012Q4

REPORT INFORMATION
  Report Type: Report from Study
  Country: CN (occurrence: CN)
  Receive Date: 20121018
  Receipt Date: 20121018
  Transmission Date: 20130627
  Serious: Yes (Hospitalization)
  Sender: FDA-Public Use
  Company Number: CN-BRISTOL-MYERS SQUIBB COMPANY-17029067

PATIENT
  Age: 52 Year
  Sex: Female

DRUGS (2)
  1. CISPLATIN [Suspect]
     Indication: BREAST CANCER
     Dosage: Prior to event cyc 3 on 24Aug12
     Route: 065
     Dates: start: 20120620
  2. GEMCITABINE HCL [Suspect]
     Indication: BREAST CANCER
     Dosage: Prior to event cyc 3 on 24Aug12
     Route: 065
     Dates: start: 20120620

REACTIONS (2)
  - Platelet count decreased [Recovering/Resolving]
  - Haemorrhage subcutaneous [Recovered/Resolved]
